FAERS Safety Report 5503640-1 (Version None)
Quarter: 2007Q4

REPORT INFORMATION
  Report Type: 
  Country: None (occurrence: None)
  Receive Date: 20071101
  Receipt Date: 20071023
  Transmission Date: 20080405
  Serious: Yes (Hospitalization)
  Sender: FDA-Public Use
  Company Number: FR-SANOFI-SYNTHELABO-A02200703170

PATIENT
  Sex: Female

DRUGS (10)
  1. LIPANTHYL [Suspect]
     Indication: DRUG USE FOR UNKNOWN INDICATION
     Dosage: UNK
     Route: 048
     Dates: end: 20070205
  2. CARDENSIEL [Suspect]
     Indication: DRUG USE FOR UNKNOWN INDICATION
     Dosage: UNK
     Route: 048
     Dates: end: 20070205
  3. COLCHICINE [Suspect]
     Indication: DRUG USE FOR UNKNOWN INDICATION
     Dosage: 2 MG
     Route: 048
     Dates: start: 20061222, end: 20061224
  4. COLCHICINE [Suspect]
     Dosage: 1 MG
     Route: 048
     Dates: start: 20061225, end: 20070130
  5. TOPALGIC [Suspect]
     Indication: DRUG USE FOR UNKNOWN INDICATION
     Dosage: UNK
     Route: 048
     Dates: end: 20070205
  6. STILNOX [Suspect]
     Indication: DRUG USE FOR UNKNOWN INDICATION
     Dosage: UNK
     Route: 048
     Dates: end: 20070205
  7. HEPARIN [Concomitant]
     Dosage: UNK
     Route: 065
     Dates: start: 20061220
  8. COUMADIN [Suspect]
     Indication: DRUG USE FOR UNKNOWN INDICATION
     Route: 048
     Dates: start: 20061222, end: 20061225
  9. COUMADIN [Suspect]
     Route: 048
     Dates: start: 20061226, end: 20070102
  10. COUMADIN [Suspect]
     Route: 048
     Dates: start: 20070103, end: 20070130

REACTIONS (1)
  - HAEMATEMESIS [None]
